FAERS Safety Report 15662022 (Version 2)
Quarter: 2019Q1

REPORT INFORMATION
  Report Type: Spontaneous
  Country: US (occurrence: US)
  Receive Date: 20181127
  Receipt Date: 20190212
  Transmission Date: 20190417
  Serious: Yes (Other)
  Sender: FDA-Public Use
  Company Number: US-BAUSCH-BL-2018-032734

PATIENT
  Age: 2 Year
  Sex: Male

DRUGS (1)
  1. DIASTAT [Suspect]
     Active Substance: DIAZEPAM
     Indication: SEIZURE
     Route: 054
     Dates: start: 201809

REACTIONS (1)
  - Device defective [Unknown]

NARRATIVE: CASE EVENT DATE: 20181120
